FAERS Safety Report 9176077 (Version 2)
Quarter: 2013Q1

REPORT INFORMATION
  Report Type: Spontaneous
  Country: CA (occurrence: CA)
  Receive Date: 20130319
  Receipt Date: 20130325
  Transmission Date: 20140127
  Serious: Yes (Other)
  Sender: FDA-Public Use
  Company Number: CA-RB-051255-13

PATIENT
  Age: 48 Year
  Sex: Male

DRUGS (1)
  1. CEPACOL [Suspect]
     Indication: PRODUCT USED FOR UNKNOWN INDICATION
     Dosage: 1 LOZENGE A FEW DAYS FROM THE DAY OF REPORTING

REACTIONS (2)
  - Throat tightness [Recovered/Resolved]
  - Product formulation issue [None]
